FAERS Safety Report 7813675 (Version 3)
Quarter: 2013Q2

REPORT INFORMATION
  Report Type: Spontaneous
  Country: DK (occurrence: DK)
  Receive Date: 20110216
  Receipt Date: 20130607
  Transmission Date: 20140414
  Serious: Yes (Other)
  Sender: FDA-Public Use
  Company Number: DK-BIOGENIDEC-2011BI004985

PATIENT
  Age: 27 Year
  Sex: Female

DRUGS (3)
  1. TYSABRI [Suspect]
     Indication: MULTIPLE SCLEROSIS
     Route: 042
     Dates: start: 20070510, end: 20090729
  2. ANTIDEPRESSANTS [Concomitant]
  3. NASAL STEROIDS [Concomitant]
     Indication: SEASONAL ALLERGY

REACTIONS (2)
  - Abortion spontaneous [Unknown]
  - Pregnancy [Unknown]
